FAERS Safety Report 7441340-1 (Version None)
Quarter: 2011Q2

REPORT INFORMATION
  Report Type: 
  Country: None (occurrence: None)
  Receive Date: 20110428
  Receipt Date: 20110418
  Transmission Date: 20111010
  Serious: Yes (Other)
  Sender: FDA-Public Use
  Company Number: US-BAYER-2011-034321

PATIENT
  Age: 54 Year
  Sex: Female

DRUGS (2)
  1. YASMIN [Suspect]
     Dosage: UNK
     Dates: start: 20081001, end: 20090409
  2. YAZ [Suspect]
     Dosage: UNK
     Dates: start: 20081001, end: 20090409

REACTIONS (4)
  - CEREBROVASCULAR ACCIDENT [None]
  - PAIN [None]
  - EMOTIONAL DISTRESS [None]
  - INJURY [None]
